FAERS Safety Report 11075124 (Version 1)
Quarter: 2015Q2

REPORT INFORMATION
  Report Type: Spontaneous
  Country: US (occurrence: None)
  Receive Date: 20150428
  Receipt Date: 20150428
  Transmission Date: 20150821
  Serious: No
  Sender: FDA-Public Use
  Company Number: None

PATIENT
  Age: 45 Year
  Sex: Female

DRUGS (1)
  1. BYDUREON [Suspect]
     Active Substance: EXENATIDE
     Indication: TYPE 2 DIABETES MELLITUS
     Dosage: 6 MONTHS?2 MG PEN, ONCE PER WEEK, GIVEN INTO/UNDER THE SKIN

REACTIONS (3)
  - Injection site pruritus [None]
  - Injection site nodule [None]
  - Injection site pain [None]
